FAERS Safety Report 5134275-0 (Version None)
Quarter: 2006Q4

REPORT INFORMATION
  Report Type: 
  Country: None (occurrence: None)
  Receive Date: 20061019
  Receipt Date: 20061006
  Transmission Date: 20070319
  Serious: Yes (Hospitalization)
  Sender: FDA-Public Use
  Company Number: FR200609001743

PATIENT
  Age: 76 Year
  Sex: Female

DRUGS (5)
  1. FORTEO [Suspect]
     Indication: OSTEOPOROSIS
     Dosage: 20 UG, DAILY (1/D), SUBCUTANEOUS
     Route: 058
     Dates: start: 20060313
  2. FORTEO [Concomitant]
  3. DIAMICRON (GLICLAZIDE) [Concomitant]
  4. LIPANTHYL (FENOFIBRATE) [Concomitant]
  5. EFFERALGAN CODEINE (CODEINE PHOSPHATE, PARACETAMOL) [Concomitant]

REACTIONS (3)
  - PULMONARY EMBOLISM [None]
  - SEPSIS [None]
  - THROMBOPHLEBITIS [None]
